FAERS Safety Report 13797080 (Version 3)
Quarter: 2017Q4

REPORT INFORMATION
  Report Type: Not Available
  Country: US (occurrence: US)
  Receive Date: 20170727
  Receipt Date: 20171025
  Transmission Date: 20180320
  Serious: No
  Sender: FDA-Public Use
  Company Number: US-NEUROCRINE BIOSCIENCES INC.-2017NBI00385

PATIENT
  Age: 65 Year
  Sex: Female

DRUGS (24)
  1. COMBIVENT [Concomitant]
     Active Substance: ALBUTEROL SULFATE\IPRATROPIUM BROMIDE
  2. FISH OIL [Concomitant]
     Active Substance: FISH OIL
  3. DONEPEZIL. [Concomitant]
     Active Substance: DONEPEZIL
  4. RALOXIFENE. [Concomitant]
     Active Substance: RALOXIFENE
  5. VITAMIN B12 [Concomitant]
     Active Substance: CYANOCOBALAMIN
  6. NIACIN. [Concomitant]
     Active Substance: NIACIN
  7. LYRICA [Concomitant]
     Active Substance: PREGABALIN
  8. REQUIP [Concomitant]
     Active Substance: ROPINIROLE HYDROCHLORIDE
  9. TRIHEXYPHENIDYL [Concomitant]
     Active Substance: TRIHEXYPHENIDYL
  10. VITAMIN D [Concomitant]
     Active Substance: CHOLECALCIFEROL
  11. INGREZZA [Suspect]
     Active Substance: VALBENAZINE
     Indication: PRODUCT USED FOR UNKNOWN INDICATION
     Route: 048
     Dates: start: 20170610, end: 2017
  12. INGREZZA [Suspect]
     Active Substance: VALBENAZINE
     Route: 048
     Dates: start: 2017, end: 2017
  13. INGREZZA [Suspect]
     Active Substance: VALBENAZINE
     Route: 048
     Dates: start: 20170725, end: 2017
  14. LEVOTHYROXIE [Concomitant]
  15. ZANTAC [Concomitant]
     Active Substance: RANITIDINE HYDROCHLORIDE
  16. ZOCOR [Concomitant]
     Active Substance: SIMVASTATIN
  17. VITAMIN E [Concomitant]
     Active Substance: .ALPHA.-TOCOPHEROL
  18. METOPROLOL. [Concomitant]
     Active Substance: METOPROLOL
  19. CLOZAPINE. [Concomitant]
     Active Substance: CLOZAPINE
  20. LEXAPRO [Concomitant]
     Active Substance: ESCITALOPRAM OXALATE
  21. FENOFIBRATE. [Concomitant]
     Active Substance: FENOFIBRATE
  22. FERROUS SULFATE. [Concomitant]
     Active Substance: FERROUS SULFATE
  23. METFORMIN [Concomitant]
     Active Substance: METFORMIN HYDROCHLORIDE
  24. XANAX [Concomitant]
     Active Substance: ALPRAZOLAM

REACTIONS (6)
  - Blood glucose decreased [Not Recovered/Not Resolved]
  - Restlessness [Unknown]
  - Somnolence [Unknown]
  - Eye swelling [Recovering/Resolving]
  - Fatigue [Not Recovered/Not Resolved]
  - Drug ineffective [Unknown]

NARRATIVE: CASE EVENT DATE: 201706
